FAERS Safety Report 6438072-5 (Version None)
Quarter: 2009Q4

REPORT INFORMATION
  Report Type: 
  Country: None (occurrence: None)
  Receive Date: 20091112
  Receipt Date: 20091103
  Transmission Date: 20100525
  Serious: Yes (Hospitalization)
  Sender: FDA-Public Use
  Company Number: US-ELI_LILLY_AND_COMPANY-US200905005592

PATIENT
  Sex: Female
  Weight: 42.63 kg

DRUGS (6)
  1. BYETTA [Suspect]
     Indication: TYPE 2 DIABETES MELLITUS
     Dosage: 5 UG, 2/D
     Route: 058
     Dates: start: 20080101, end: 20080101
  2. BYETTA [Suspect]
     Dosage: 10 UG, 2/D
     Route: 058
     Dates: start: 20080101
  3. BYETTA [Suspect]
     Dosage: 5 UG, 2/D
     Route: 058
     Dates: start: 20090301, end: 20090401
  4. BYETTA [Suspect]
     Dosage: 10 UG, 2/D
     Route: 058
     Dates: start: 20090401
  5. ANALGESICS [Concomitant]
     Indication: BACK PAIN
  6. PLAVIX [Concomitant]

REACTIONS (5)
  - CONTUSION [None]
  - EXCORIATION [None]
  - FALL [None]
  - SPINAL OSTEOARTHRITIS [None]
  - WEIGHT DECREASED [None]
